FAERS Safety Report 10528430 (Version 1)
Quarter: 2014Q4

REPORT INFORMATION
  Report Type: Spontaneous
  Country: US (occurrence: None)
  Receive Date: 20141016
  Receipt Date: 20141016
  Transmission Date: 20150528
  Serious: Yes (Hospitalization)
  Sender: FDA-Public Use
  Company Number: None

PATIENT
  Age: 45 Year
  Sex: Male
  Weight: 108.5 kg

DRUGS (1)
  1. VENLAFAXINE [Suspect]
     Active Substance: VENLAFAXINE HYDROCHLORIDE
     Indication: DEPRESSION
     Route: 048
     Dates: start: 20140529, end: 20140530

REACTIONS (7)
  - Migraine [None]
  - Rash [None]
  - Respiratory depression [None]
  - Respiratory tract oedema [None]
  - Headache [None]
  - Burning sensation [None]
  - Purpura [None]

NARRATIVE: CASE EVENT DATE: 20140530
